FAERS Safety Report 8856954 (Version 1)
Quarter: 2012Q4

REPORT INFORMATION
  Report Type: Spontaneous
  Country: DK (occurrence: None)
  Receive Date: 20121019
  Receipt Date: 20121019
  Transmission Date: 20130627
  Serious: Yes (Life-Threatening, Hospitalization, Disabling)
  Sender: FDA-Public Use
  Company Number: 2012MA012309

PATIENT
  Age: 69 Year
  Sex: Female

DRUGS (1)
  1. NAPROXEN [Suspect]
     Indication: ARTHRITIC PAINS
     Route: 048
     Dates: start: 201201, end: 20120909

REACTIONS (2)
  - Drug prescribing error [None]
  - Ruptured cerebral aneurysm [None]
